FAERS Safety Report 13391985 (Version 2)
Quarter: 2017Q2

REPORT INFORMATION
  Report Type: Spontaneous
  Country: ES (occurrence: ES)
  Receive Date: 20170331
  Receipt Date: 20170412
  Transmission Date: 20170830
  Serious: Yes (Death, Hospitalization)
  Sender: FDA-Public Use
  Company Number: ES-PFIZER INC-2017136452

PATIENT
  Age: 62 Year
  Sex: Male

DRUGS (1)
  1. ARGANOVA [Suspect]
     Active Substance: ARGATROBAN
     Indication: HEPARIN-INDUCED THROMBOCYTOPENIA
     Dosage: 1 UG/KG/MIN
     Route: 042

REACTIONS (3)
  - Thrombosis [Fatal]
  - Coagulation time prolonged [Unknown]
  - Multiple organ dysfunction syndrome [Fatal]
